FAERS Safety Report 18656518 (Version 2)
Quarter: 2021Q1

REPORT INFORMATION
  Report Type: Spontaneous
  Country: US (occurrence: US)
  Receive Date: 20201223
  Receipt Date: 20210111
  Transmission Date: 20210419
  Serious: Yes (Other)
  Sender: FDA-Public Use
  Company Number: US-AUROBINDO-AUR-APL-2020-062309

PATIENT
  Sex: Male

DRUGS (1)
  1. AMIODARONE HYDROCHLORIDE 200 MG TABLET [Suspect]
     Active Substance: AMIODARONE HYDROCHLORIDE
     Indication: ATRIAL FIBRILLATION
     Dosage: UNK
     Route: 065
     Dates: start: 201906

REACTIONS (9)
  - Headache [Unknown]
  - Eye pain [Unknown]
  - Optic ischaemic neuropathy [Unknown]
  - Optic nerve injury [Unknown]
  - Vitreous floaters [Unknown]
  - Visual impairment [Unknown]
  - Blindness [Unknown]
  - Dizziness [Unknown]
  - Off label use [Unknown]

NARRATIVE: CASE EVENT DATE: 201906
